FAERS Safety Report 13780793 (Version 4)
Quarter: 2018Q1

REPORT INFORMATION
  Report Type: Spontaneous
  Country: US (occurrence: US)
  Receive Date: 20170724
  Receipt Date: 20180321
  Transmission Date: 20180508
  Serious: Yes (Other)
  Sender: FDA-Public Use
  Company Number: US-PFIZER INC-2017318931

PATIENT
  Age: 64 Year
  Sex: Female

DRUGS (19)
  1. MARCAINE [Concomitant]
     Active Substance: BUPIVACAINE HYDROCHLORIDE
     Dosage: SOLUTION 0.75%
  2. MORPHINE SULFATE. [Concomitant]
     Active Substance: MORPHINE SULFATE
     Dosage: 15 MG, UNK
  3. XELJANZ XR [Suspect]
     Active Substance: TOFACITINIB CITRATE
     Indication: RHEUMATOID ARTHRITIS
     Dosage: 11 MG, DAILY
     Route: 048
     Dates: start: 20170721
  4. FOSAMAX [Concomitant]
     Active Substance: ALENDRONATE SODIUM
     Dosage: 70 MG, UNK
  5. METHOTREXATE. [Concomitant]
     Active Substance: METHOTREXATE
     Dosage: 2.5 MG, UNK
  6. PREDNISONE. [Concomitant]
     Active Substance: PREDNISONE
     Dosage: 5 MG, UNK
  7. XELJANZ XR [Suspect]
     Active Substance: TOFACITINIB CITRATE
     Dosage: 11 MG, DAILY (TAKE 1 TABLET )
     Route: 048
     Dates: start: 201705
  8. CARISOPRODOL. [Concomitant]
     Active Substance: CARISOPRODOL
     Dosage: 250 MG, UNK
  9. FOLIC ACID. [Concomitant]
     Active Substance: FOLIC ACID
     Dosage: 1 MG, UNK
  10. RITUXAN [Concomitant]
     Active Substance: RITUXIMAB
     Dosage: 500 MG, UNK
  11. DULOXETINE HCL [Concomitant]
     Active Substance: DULOXETINE HYDROCHLORIDE
     Dosage: 60 MG, UNK
  12. PILOCARPINE. [Concomitant]
     Active Substance: PILOCARPINE
     Dosage: 5 MG, UNK
  13. OMEPRAZOLE. [Concomitant]
     Active Substance: OMEPRAZOLE
     Dosage: 20 MG, UNK
  14. DULOXETINE HCL [Concomitant]
     Active Substance: DULOXETINE HYDROCHLORIDE
     Dosage: 20 MG, UNK
  15. CELECOXIB. [Concomitant]
     Active Substance: CELECOXIB
     Dosage: 100 MG, UNK
  16. IRON [Concomitant]
     Active Substance: IRON
     Dosage: 28 MG, UNK
  17. LEVOTHYROXIN [Concomitant]
     Active Substance: LEVOTHYROXINE
     Dosage: 75MCG
  18. METFORMIN HCL [Concomitant]
     Active Substance: METFORMIN HYDROCHLORIDE
     Dosage: 500 MG, UNK
  19. MORPHINE SULFATE. [Concomitant]
     Active Substance: MORPHINE SULFATE
     Dosage: 5 MG, UNK

REACTIONS (14)
  - Groin pain [Not Recovered/Not Resolved]
  - Drug ineffective [Unknown]
  - Pain [Unknown]
  - Lower respiratory tract infection [Not Recovered/Not Resolved]
  - Fatigue [Not Recovered/Not Resolved]
  - Hepatic enzyme increased [Not Recovered/Not Resolved]
  - Arthralgia [Not Recovered/Not Resolved]
  - Neck pain [Not Recovered/Not Resolved]
  - Musculoskeletal pain [Not Recovered/Not Resolved]
  - Peripheral swelling [Unknown]
  - Pain in extremity [Not Recovered/Not Resolved]
  - Headache [Unknown]
  - Musculoskeletal stiffness [Unknown]
  - Insomnia [Not Recovered/Not Resolved]
